FAERS Safety Report 4648239-4 (Version None)
Quarter: 2005Q2

REPORT INFORMATION
  Report Type: 
  Country: None (occurrence: None)
  Receive Date: 20050331
  Receipt Date: 20050208
  Transmission Date: 20051028
  Serious: No
  Sender: FDA-Public Use
  Company Number: 05P-163-0289953-00

PATIENT
  Age: 56 Year
  Sex: Female
  Weight: 63.5036 kg

DRUGS (5)
  1. HUMIRA [Suspect]
     Indication: RHEUMATOID ARTHRITIS
     Dosage: 40 MG, 1 IN 2 WK, SUBCUTANEOUS
     Route: 058
     Dates: start: 20040201
  2. SULFASALAZINE [Concomitant]
  3. SALAZINE [Concomitant]
  4. PEROXICAN [Concomitant]
  5. PREDNISONE [Concomitant]

REACTIONS (3)
  - INJECTION SITE IRRITATION [None]
  - MEDICATION ERROR [None]
  - RHEUMATOID ARTHRITIS [None]
